FAERS Safety Report 14659266 (Version 1)
Quarter: 2018Q1

REPORT INFORMATION
  Report Type: Report from Study
  Country: AU (occurrence: AU)
  Receive Date: 20180320
  Receipt Date: 20180320
  Transmission Date: 20180509
  Serious: Yes (Other)
  Sender: FDA-Public Use
  Company Number: AU-REGENERON PHARMACEUTICALS, INC.-2018-18329

PATIENT

DRUGS (1)
  1. EYLEA [Suspect]
     Active Substance: AFLIBERCEPT
     Indication: DIABETIC RETINAL OEDEMA
     Dosage: TOTAL DOSES AND LAST DOSE PRIOR THE EVENT WERE NOT PROVIDED
     Route: 031
     Dates: start: 201707

REACTIONS (3)
  - Foreign body sensation in eyes [Recovered/Resolved]
  - Cataract operation [Recovering/Resolving]
  - Injection site discomfort [Recovered/Resolved]

NARRATIVE: CASE EVENT DATE: 201712
